FAERS Safety Report 25772710 (Version 1)
Quarter: 2025Q3

REPORT INFORMATION
  Report Type: Spontaneous
  Country: US (occurrence: US)
  Receive Date: 20250908
  Receipt Date: 20250908
  Transmission Date: 20251020
  Serious: No
  Sender: CIPLA
  Company Number: US-CIPLA LTD.-2025US01939

PATIENT

DRUGS (13)
  1. DICLOFENAC [Suspect]
     Active Substance: DICLOFENAC
     Indication: Sciatica
     Route: 065
  2. DICLOFENAC [Suspect]
     Active Substance: DICLOFENAC
     Indication: Intervertebral disc protrusion
     Dosage: 2 GRAM, QID (2 GRAMS 4 TIMES A DAY, SOME DAYS PATIENT USES AS PRESCRIBED BUT SOME DAYS USES LESS)
     Route: 065
  3. DICLOFENAC [Suspect]
     Active Substance: DICLOFENAC
     Indication: Arthralgia
     Route: 065
  4. LIDOCAINE AND PRILOCAINE [Concomitant]
     Active Substance: LIDOCAINE\PRILOCAINE
     Indication: Sciatica
     Route: 065
  5. LIDOCAINE AND PRILOCAINE [Concomitant]
     Active Substance: LIDOCAINE\PRILOCAINE
     Indication: Neuralgia
  6. ESTRADIOL [Concomitant]
     Active Substance: ESTRADIOL
     Indication: Immune system disorder
     Dosage: 5MG OR 0.5MG, QD (ONE PILL A DAY, PATIENT WAS NOT SURE ABOUT DOSE)
     Route: 065
     Dates: start: 2023
  7. PROGESTERONE [Concomitant]
     Active Substance: PROGESTERONE
     Indication: Oestradiol decreased
     Dosage: 0.5 MILLIGRAM, QD
     Route: 065
     Dates: start: 2023
  8. VALACYCLOVIR [Concomitant]
     Active Substance: VALACYCLOVIR HYDROCHLORIDE
     Indication: Product used for unknown indication
     Dosage: 500 MILLIGRAM, BID
     Route: 065
     Dates: start: 2019
  9. AMOXICILLIN [Concomitant]
     Active Substance: AMOXICILLIN
     Indication: Infection
     Route: 065
     Dates: start: 202501
  10. PANTOPRAZOLE [Concomitant]
     Active Substance: PANTOPRAZOLE
     Indication: Gastrooesophageal reflux disease
     Dosage: 40 MILLIGRAM, BID
     Route: 065
     Dates: start: 202411
  11. ONDANSETRON [Concomitant]
     Active Substance: ONDANSETRON
     Indication: Nausea
     Route: 065
  12. ONDANSETRON [Concomitant]
     Active Substance: ONDANSETRON
     Indication: Vomiting
  13. MUPIROCIN [Concomitant]
     Active Substance: MUPIROCIN
     Indication: Nasal congestion
     Dosage: UNK UNK, BID
     Route: 061
     Dates: start: 202407

REACTIONS (3)
  - Pain of skin [Not Recovered/Not Resolved]
  - Off label use [Unknown]
  - Intentional product misuse [Unknown]
